FAERS Safety Report 8038644-0 (Version None)
Quarter: 2012Q1

REPORT INFORMATION
  Report Type: 
  Country: None (occurrence: None)
  Receive Date: 20120111
  Receipt Date: 20111130
  Transmission Date: 20120608
  Serious: Yes (Other)
  Sender: FDA-Public Use
  Company Number: US-AMGEN-USASP2011063702

PATIENT
  Age: 58 Year
  Sex: Female

DRUGS (4)
  1. LASIX [Concomitant]
     Dosage: UNK
  2. POTASSIUM CHLORIDE [Concomitant]
     Dosage: UNK
  3. AZOR                               /00595201/ [Concomitant]
     Dosage: UNK
  4. ENBREL [Suspect]
     Indication: RHEUMATOID ARTHRITIS
     Dosage: 50 MG, QWK
     Dates: start: 20101001

REACTIONS (2)
  - FUNGAL INFECTION [None]
  - HEPATIC ENZYME INCREASED [None]
